FAERS Safety Report 19856346 (Version 1)
Quarter: 2021Q3

REPORT INFORMATION
  Report Type: Spontaneous
  Country: US (occurrence: US)
  Receive Date: 20210920
  Receipt Date: 20210920
  Transmission Date: 20211014
  Serious: Yes (Other)
  Sender: FDA-Public Use
  Company Number: US-JNJFOC-20210763744

PATIENT
  Age: 62 Year
  Sex: Male

DRUGS (1)
  1. NEUTROGENA BEACH DEFENSE WATER PLUS SUN PROTECTION SUNSCREEN BROAD SPECTRUM SPF 50 [Suspect]
     Active Substance: AVOBENZONE\HOMOSALATE\OCTISALATE\OCTOCRYLENE
     Indication: PROPHYLAXIS
     Dosage: SEVEAL TIMES A DAY WHILE GOLFING, USED 2 OR 3 CANS DURING THIS TIME PERIOD
     Route: 061
     Dates: start: 20200620, end: 20200901

REACTIONS (1)
  - Neoplasm malignant [Recovered/Resolved]
